FAERS Safety Report 10264943 (Version 3)
Quarter: 2015Q3

REPORT INFORMATION
  Report Type: Spontaneous
  Country: US (occurrence: US)
  Receive Date: 20140627
  Receipt Date: 20150814
  Transmission Date: 20151125
  Serious: No
  Sender: FDA-Public Use
  Company Number: US-PFIZER INC-2014174741

PATIENT
  Age: 72 Year
  Sex: Female
  Weight: 87.75 kg

DRUGS (1)
  1. XALKORI [Suspect]
     Active Substance: CRIZOTINIB
     Dosage: 200 MG, 1X/DAY

REACTIONS (3)
  - Nasopharyngitis [Unknown]
  - Constipation [Unknown]
  - Peripheral swelling [Unknown]
